FAERS Safety Report 17524883 (Version 1)
Quarter: 2020Q1

REPORT INFORMATION
  Report Type: Spontaneous
  Country: IT (occurrence: IT)
  Receive Date: 20200311
  Receipt Date: 20200311
  Transmission Date: 20200409
  Serious: Yes (Hospitalization)
  Sender: FDA-Public Use
  Company Number: NVSC2020IT066740

PATIENT
  Weight: 2.42 kg

DRUGS (1)
  1. ACETYLSALICYLIC ACID [Suspect]
     Active Substance: ASPIRIN
     Indication: FOETAL EXPOSURE DURING PREGNANCY
     Dosage: UNK (MATERNAL DOSE: UNK)
     Route: 064

REACTIONS (10)
  - Portal vein thrombosis [Unknown]
  - Premature baby [Unknown]
  - Low birth weight baby [Unknown]
  - Jaundice cholestatic [Unknown]
  - Respiratory distress [Unknown]
  - Intraventricular haemorrhage [Unknown]
  - Foetal exposure during pregnancy [Unknown]
  - Cytogenetic abnormality [Unknown]
  - Ventricular septal defect [Unknown]
  - Junctional ectopic tachycardia [Unknown]
